FAERS Safety Report 10610407 (Version 1)
Quarter: 2014Q4

REPORT INFORMATION
  Report Type: Spontaneous
  Country: US (occurrence: None)
  Receive Date: 20141124
  Receipt Date: 20141124
  Transmission Date: 20150529
  Serious: Yes (Hospitalization, Other)
  Sender: FDA-Public Use
  Company Number: 201411067

PATIENT
  Sex: Male

DRUGS (1)
  1. TESTOPEL [Suspect]
     Active Substance: TESTOSTERONE
     Dates: start: 201010, end: 201106

REACTIONS (7)
  - Myocardial infarction [None]
  - Family stress [None]
  - Anhedonia [None]
  - Fear [None]
  - Frustration [None]
  - Economic problem [None]
  - Cardiovascular disorder [None]

NARRATIVE: CASE EVENT DATE: 20110629
